FAERS Safety Report 13077029 (Version 3)
Quarter: 2021Q2

REPORT INFORMATION
  Report Type: Report from Study
  Country: US (occurrence: US)
  Receive Date: 20161230
  Receipt Date: 20210624
  Transmission Date: 20210716
  Serious: Yes (Hospitalization)
  Sender: FDA-Public Use
  Company Number: US-CELGENEUS-USA-2016126947

PATIENT
  Age: 73 Year

DRUGS (31)
  1. DECADRON [Concomitant]
     Active Substance: DEXAMETHASONE
     Route: 048
     Dates: start: 20160112, end: 20160928
  2. DECADRON [Concomitant]
     Active Substance: DEXAMETHASONE
     Route: 048
     Dates: start: 20160929, end: 20190116
  3. CYCLOPHOSPHAMIDE. [Suspect]
     Active Substance: CYCLOPHOSPHAMIDE
     Route: 041
     Dates: start: 20150507, end: 20150702
  4. DARATUMUMAB [Concomitant]
     Active Substance: DARATUMUMAB
     Route: 041
     Dates: start: 20151209, end: 20151209
  5. DARATUMUMAB [Concomitant]
     Active Substance: DARATUMUMAB
     Route: 041
     Dates: start: 20151216, end: 20151216
  6. CYCLOPHOSPHAMIDE. [Suspect]
     Active Substance: CYCLOPHOSPHAMIDE
     Route: 041
     Dates: start: 20150517, end: 20150701
  7. DEXAMETHASONE IV [Suspect]
     Active Substance: DEXAMETHASONE
     Indication: PLASMA CELL MYELOMA
     Route: 041
     Dates: start: 20150517, end: 20150701
  8. DEXAMETHASONE IV [Suspect]
     Active Substance: DEXAMETHASONE
     Route: 041
     Dates: start: 20190509, end: 20190509
  9. POMALYST [Suspect]
     Active Substance: POMALIDOMIDE
     Dosage: 4 MILLIGRAM
     Route: 048
     Dates: start: 2015, end: 20150812
  10. VELCADE [Concomitant]
     Active Substance: BORTEZOMIB
     Route: 041
     Dates: start: 20120821, end: 20130401
  11. DECADRON [Concomitant]
     Active Substance: DEXAMETHASONE
     Dosage: 36 MILLIGRAM
     Route: 048
     Dates: start: 20120524, end: 20130218
  12. DECADRON [Concomitant]
     Active Substance: DEXAMETHASONE
     Route: 048
     Dates: start: 20150507, end: 20150702
  13. DECADRON [Concomitant]
     Active Substance: DEXAMETHASONE
     Route: 048
     Dates: start: 20190117, end: 20210114
  14. DECADRON [Concomitant]
     Active Substance: DEXAMETHASONE
     Dosage: 4 MILLIGRAM
     Route: 048
     Dates: start: 20210115, end: 20210308
  15. VELCADE [Concomitant]
     Active Substance: BORTEZOMIB
     Route: 058
     Dates: start: 20150716, end: 20150716
  16. BENDAMUSTINE [Concomitant]
     Active Substance: BENDAMUSTINE
     Indication: PRODUCT USED FOR UNKNOWN INDICATION
     Route: 041
     Dates: start: 20150716, end: 20150717
  17. POMALYST [Suspect]
     Active Substance: POMALIDOMIDE
     Dosage: 4 MILLIGRAM
     Route: 048
     Dates: start: 20150507, end: 20150702
  18. DECADRON [Concomitant]
     Active Substance: DEXAMETHASONE
     Indication: PRODUCT USED FOR UNKNOWN INDICATION
     Route: 048
     Dates: start: 20100323, end: 20100629
  19. DECADRON [Concomitant]
     Active Substance: DEXAMETHASONE
     Route: 048
     Dates: start: 20130220, end: 20130425
  20. DECADRON [Concomitant]
     Active Substance: DEXAMETHASONE
     Route: 048
     Dates: start: 20140825, end: 20141217
  21. DARATUMUMAB [Concomitant]
     Active Substance: DARATUMUMAB
     Indication: PRODUCT USED FOR UNKNOWN INDICATION
     Dosage: 100 MILLIGRAM
     Route: 041
     Dates: start: 20151208, end: 20151208
  22. DARATUMUMAB [Concomitant]
     Active Substance: DARATUMUMAB
     Route: 041
     Dates: start: 20160204, end: 20160204
  23. DARATUMUMAB [Concomitant]
     Active Substance: DARATUMUMAB
     Dosage: 1300 MILLIGRAM
     Route: 041
     Dates: start: 20160609, end: 20160609
  24. VELCADE [Concomitant]
     Active Substance: BORTEZOMIB
     Route: 041
     Dates: start: 20120521, end: 20120820
  25. VELCADE [Concomitant]
     Active Substance: BORTEZOMIB
     Route: 058
     Dates: start: 20130410, end: 20130425
  26. POMALYST [Suspect]
     Active Substance: POMALIDOMIDE
     Indication: PLASMA CELL MYELOMA
     Dosage: 4 MILLIGRAM
     Route: 048
     Dates: start: 20150113
  27. CYCLOPHOSPHAMIDE. [Suspect]
     Active Substance: CYCLOPHOSPHAMIDE
     Indication: PLASMA CELL MYELOMA
     Route: 041
     Dates: start: 20100701, end: 20100701
  28. VELCADE [Concomitant]
     Active Substance: BORTEZOMIB
     Indication: PRODUCT USED FOR UNKNOWN INDICATION
     Route: 041
     Dates: start: 20100323, end: 20100628
  29. DECADRON [Concomitant]
     Active Substance: DEXAMETHASONE
     Route: 048
     Dates: start: 20130513, end: 20140729
  30. DECADRON [Concomitant]
     Active Substance: DEXAMETHASONE
     Dosage: 40 MILLIGRAM
     Route: 048
     Dates: start: 20150716, end: 20150717
  31. DECADRON [Concomitant]
     Active Substance: DEXAMETHASONE
     Dosage: 4 MILLIGRAM
     Route: 048
     Dates: start: 20210309

REACTIONS (2)
  - Diverticulitis [Recovered/Resolved]
  - Diverticulitis [Not Recovered/Not Resolved]

NARRATIVE: CASE EVENT DATE: 20150619
